FAERS Safety Report 5089101-5 (Version None)
Quarter: 2006Q3

REPORT INFORMATION
  Report Type: 
  Country: None (occurrence: None)
  Receive Date: 20060822
  Receipt Date: 20060804
  Transmission Date: 20061208
  Serious: Yes (Other)
  Sender: FDA-Public Use
  Company Number: CA200606005022

PATIENT
  Age: 57 Year
  Sex: Female

DRUGS (7)
  1. FORTEO [Suspect]
     Indication: OSTEOPOROSIS
     Dosage: 20 UG, DAILY (1/D)
     Dates: start: 20051118, end: 20060519
  2. FORTEO PEN (FORTEO PEN) PEN, DISPOSABLE [Concomitant]
  3. CALCIUM (CALCIUM) [Concomitant]
  4. VITAMIN D [Concomitant]
  5. FLEXERIL [Concomitant]
  6. MULTIVIT (VITAMINS NOS) [Concomitant]
  7. IRON (IRON) [Concomitant]

REACTIONS (3)
  - CHEST PAIN [None]
  - ENCHONDROMATOSIS [None]
  - OSTEOSCLEROSIS [None]
